FAERS Safety Report 6031122-X (Version None)
Quarter: 2008Q4

REPORT INFORMATION
  Report Type: 
  Country: None (occurrence: None)
  Receive Date: 20081222
  Receipt Date: 20081119
  Transmission Date: 20090506
  Serious: No
  Sender: FDA-Public Use
  Company Number: US-WYE-H06914208

PATIENT
  Age: 23 Year
  Sex: Female
  Weight: 45.4 kg

DRUGS (2)
  1. PRISTIQ [Suspect]
  2. ORTHO TRI-CYCLEN [Concomitant]

REACTIONS (3)
  - FEELING ABNORMAL [None]
  - HYPOAESTHESIA ORAL [None]
  - SENSORY DISTURBANCE [None]
